FAERS Safety Report 19276917 (Version 3)
Quarter: 2021Q3

REPORT INFORMATION
  Report Type: Spontaneous
  Country: CA (occurrence: CA)
  Receive Date: 20210520
  Receipt Date: 20210902
  Transmission Date: 20211014
  Serious: Yes (Hospitalization, Other)
  Sender: FDA-Public Use
  Company Number: CA-SPECGX-T202101165

PATIENT
  Age: 2 Month
  Sex: Male
  Weight: 2 kg

DRUGS (10)
  1. KEPPRA [Concomitant]
     Active Substance: LEVETIRACETAM
     Dosage: 10 MILLIGRAM, QD
     Route: 048
  2. AMOXICILLIN. [Concomitant]
     Active Substance: AMOXICILLIN
     Indication: PROPHYLAXIS
     Dosage: 28 MILLIGRAM, Q12H
     Route: 048
  3. SOLIRIS [Suspect]
     Active Substance: ECULIZUMAB
     Dosage: 300 MILLIGRAM
     Route: 042
  4. VITAMIN D3 [Concomitant]
     Active Substance: CHOLECALCIFEROL
     Indication: PRODUCT USED FOR UNKNOWN INDICATION
     Dosage: 1000 INTERNATIONAL UNIT
     Route: 048
  5. METHADOSE [Suspect]
     Active Substance: METHADONE HYDROCHLORIDE
     Indication: PAIN
     Dosage: UNK
     Route: 065
  6. MAGNESIUM [Concomitant]
     Active Substance: MAGNESIUM
     Indication: PRODUCT USED FOR UNKNOWN INDICATION
     Dosage: 60 MILLIGRAM, Q6H
     Route: 048
  7. PHENOBARBITAL. [Concomitant]
     Active Substance: PHENOBARBITAL
     Indication: PRODUCT USED FOR UNKNOWN INDICATION
     Dosage: 6 MILLIGRAM, Q12H
     Route: 048
  8. SOLIRIS [Suspect]
     Active Substance: ECULIZUMAB
     Indication: ATYPICAL HAEMOLYTIC URAEMIC SYNDROME
     Dosage: 300 MILLIGRAM, WEEKLY
     Route: 042
     Dates: start: 2018
  9. IRON [Concomitant]
     Active Substance: IRON
     Indication: PRODUCT USED FOR UNKNOWN INDICATION
     Dosage: 18 MILLIGRAM
     Route: 048
  10. KEPPRA [Concomitant]
     Active Substance: LEVETIRACETAM
     Indication: PRODUCT USED FOR UNKNOWN INDICATION
     Dosage: 5 MILLIGRAM, QD (Q AM)
     Route: 048

REACTIONS (27)
  - Diarrhoea haemorrhagic [Unknown]
  - Vitamin D deficiency [Unknown]
  - Platelet count decreased [Recovered/Resolved]
  - Tremor [Not Recovered/Not Resolved]
  - Anaemia [Recovered/Resolved]
  - Hypercalcaemia [Recovered/Resolved]
  - Metabolic acidosis [Unknown]
  - Thrombotic microangiopathy [Recovering/Resolving]
  - Complement factor decreased [Recovering/Resolving]
  - Gastrointestinal disorder [Not Recovered/Not Resolved]
  - Seizure [Unknown]
  - Weight gain poor [Recovered/Resolved]
  - Blood lactate dehydrogenase increased [Unknown]
  - Diarrhoea [Recovered/Resolved]
  - Haemoglobin decreased [Unknown]
  - Hyperparathyroidism [Unknown]
  - Hypocalcaemia [Unknown]
  - Platelet count increased [Unknown]
  - Product used for unknown indication [Not Recovered/Not Resolved]
  - Hypophosphataemia [Unknown]
  - Skin exfoliation [Recovered/Resolved]
  - Hypomagnesaemia [Unknown]
  - Hospitalisation [Not Recovered/Not Resolved]
  - Blood creatinine decreased [Unknown]
  - Dehydration [Unknown]
  - Hypernatraemia [Recovered/Resolved]
  - Product use issue [Not Recovered/Not Resolved]

NARRATIVE: CASE EVENT DATE: 2018
